FAERS Safety Report 15370941 (Version 1)
Quarter: 2018Q3

REPORT INFORMATION
  Report Type: Spontaneous
  Country: US (occurrence: US)
  Receive Date: 20180911
  Receipt Date: 20180911
  Transmission Date: 20181010
  Serious: No
  Sender: FDA-Public Use
  Company Number: US-SA-2018SA249416

PATIENT

DRUGS (1)
  1. ALLEGRA ALLERGY [Suspect]
     Active Substance: FEXOFENADINE HYDROCHLORIDE
     Indication: HYPERSENSITIVITY
     Dosage: UNK UNK, UNK
     Route: 065

REACTIONS (10)
  - Tinnitus [Unknown]
  - Malaise [Unknown]
  - Confusional state [Unknown]
  - Dyspepsia [Unknown]
  - Vision blurred [Unknown]
  - Cough [Unknown]
  - Toothache [Unknown]
  - Dizziness [Unknown]
  - Back pain [Unknown]
  - Insomnia [Unknown]
